FAERS Safety Report 23411686 (Version 1)
Quarter: 2024Q1

REPORT INFORMATION
  Report Type: Spontaneous
  Country: US (occurrence: US)
  Receive Date: 20240117
  Receipt Date: 20240117
  Transmission Date: 20240409
  Serious: No
  Sender: FDA-Public Use
  Company Number: US-SA-SAC20240111001945

PATIENT
  Age: 54 Year
  Sex: Female

DRUGS (41)
  1. DUPIXENT [Suspect]
     Active Substance: DUPILUMAB
     Indication: Asthma
     Dosage: DOSE: 300 MG/2ML FREQUENCY: 300 MG/2ML: INJECT 1 SYRINGE UNDER THE SKIN (SUBCUTANEOUS INJECTION) EVE
     Route: 058
     Dates: start: 20220222
  2. ALBUTEROL SULFATE [Concomitant]
     Active Substance: ALBUTEROL SULFATE
  3. ALLEGRA-D 24 HOUR [Concomitant]
     Active Substance: FEXOFENADINE HYDROCHLORIDE\PSEUDOEPHEDRINE HYDROCHLORIDE
  4. ANORO ELLIPTA [Concomitant]
     Active Substance: UMECLIDINIUM BROMIDE\VILANTEROL TRIFENATATE
  5. AZELASTINE [Concomitant]
     Active Substance: AZELASTINE\AZELASTINE HYDROCHLORIDE
  6. BUSPIRONE [Concomitant]
     Active Substance: BUSPIRONE HYDROCHLORIDE
  7. CETIRIZINE [Concomitant]
     Active Substance: CETIRIZINE HYDROCHLORIDE
  8. CICLOPIROX [Concomitant]
     Active Substance: CICLOPIROX\TOCOPHEROL
  9. DICLOFENAC [Concomitant]
     Active Substance: DICLOFENAC
  10. EPINEPHRINE [Concomitant]
     Active Substance: EPINEPHRINE
  11. ESCITALOPRAM [Concomitant]
     Active Substance: ESCITALOPRAM OXALATE
  12. FEXOFENADINE [Concomitant]
     Active Substance: FEXOFENADINE HYDROCHLORIDE
  13. FLUTICASONE PROPIONATE\SALMETEROL XINAFOATE [Concomitant]
     Active Substance: FLUTICASONE PROPIONATE\SALMETEROL XINAFOATE
  14. FLUTICASONE [Concomitant]
     Active Substance: FLUTICASONE
  15. IPRATROPIUM [Concomitant]
     Active Substance: IPRATROPIUM
  16. LISINOPRIL [Concomitant]
     Active Substance: LISINOPRIL
  17. METFORMIN [Concomitant]
     Active Substance: METFORMIN HYDROCHLORIDE
  18. MONTELUKAST [Concomitant]
     Active Substance: MONTELUKAST SODIUM
  19. NAPROXEN [Concomitant]
     Active Substance: NAPROXEN
  20. ALBUTEROL [Concomitant]
     Active Substance: ALBUTEROL
  21. NICOTINE [Concomitant]
     Active Substance: NICOTINE
  22. OMEPRAZOLE [Concomitant]
     Active Substance: OMEPRAZOLE
  23. PANTOPRAZOLE [Concomitant]
     Active Substance: PANTOPRAZOLE
  24. PROMETHAZINE [Concomitant]
     Active Substance: PROMETHAZINE HYDROCHLORIDE
  25. SODIUM CHLORIDE [Concomitant]
     Active Substance: SODIUM CHLORIDE
  26. WIXELA INHUB [Concomitant]
     Active Substance: FLUTICASONE PROPIONATE\SALMETEROL XINAFOATE
  27. XHANCE [Concomitant]
     Active Substance: FLUTICASONE PROPIONATE
  28. BUPROPION HYDROCHLORIDE [Concomitant]
     Active Substance: BUPROPION HYDROCHLORIDE
  29. CICLOPIROX [Concomitant]
     Active Substance: CICLOPIROX\TOCOPHEROL
  30. CLARITHROMYCIN [Concomitant]
     Active Substance: CLARITHROMYCIN
  31. HYDROCORTISONE ACETATE [Concomitant]
     Active Substance: HYDROCORTISONE ACETATE
  32. HYDROCORTISONE [Concomitant]
     Active Substance: HYDROCORTISONE
  33. LEVOTHYROXINE [Concomitant]
     Active Substance: LEVOTHYROXINE\LEVOTHYROXINE SODIUM
  34. LEVOTHYROXINE [Concomitant]
     Active Substance: LEVOTHYROXINE\LEVOTHYROXINE SODIUM
  35. LEVOTHYROXINE [Concomitant]
     Active Substance: LEVOTHYROXINE\LEVOTHYROXINE SODIUM
  36. LEVOTHYROXINE [Concomitant]
     Active Substance: LEVOTHYROXINE\LEVOTHYROXINE SODIUM
  37. NAPROXEN [Concomitant]
     Active Substance: NAPROXEN
  38. OMEPRAZOLE [Concomitant]
     Active Substance: OMEPRAZOLE
  39. TRIAMCINOLONE [Concomitant]
     Active Substance: TRIAMCINOLONE
  40. VITAMIN D NOS [Concomitant]
     Active Substance: VITAMIN D NOS
  41. HYDROCORTISONE;NEOMYCIN;POLYMYXIN B [Concomitant]

REACTIONS (1)
  - COVID-19 [Recovered/Resolved]

NARRATIVE: CASE EVENT DATE: 20231101
